FAERS Safety Report 7300705-9 (Version None)
Quarter: 2011Q1

REPORT INFORMATION
  Report Type: 
  Country: None (occurrence: None)
  Receive Date: 20110103
  Receipt Date: 20100415
  Transmission Date: 20110831
  Serious: Yes (Other)
  Sender: FDA-Public Use
  Company Number: US-004329

PATIENT
  Age: 45 Year
  Sex: Female

DRUGS (2)
  1. PROHANCE [Suspect]
     Indication: NEUROPATHY PERIPHERAL
     Dosage: 20ML ONCE INTRAVENOUS
     Route: 042
     Dates: start: 20100412, end: 20100412
  2. PROHANCE [Suspect]
     Indication: NUCLEAR MAGNETIC RESONANCE IMAGING BRAIN
     Dosage: 20ML ONCE INTRAVENOUS
     Route: 042
     Dates: start: 20100412, end: 20100412

REACTIONS (2)
  - BRONCHOSPASM [None]
  - COUGH [None]
